FAERS Safety Report 8456131-2 (Version None)
Quarter: 2012Q2

REPORT INFORMATION
  Report Type: 
  Country: None (occurrence: None)
  Receive Date: 20120621
  Receipt Date: 20120613
  Transmission Date: 20120825
  Serious: Yes (Hospitalization)
  Sender: FDA-Public Use
  Company Number: PHFR2011GB06228

PATIENT
  Sex: Male
  Weight: 83 kg

DRUGS (8)
  1. HALOPERIDOL [Concomitant]
     Route: 048
  2. CLOZARIL [Suspect]
     Indication: SCHIZOPHRENIA
     Route: 048
     Dates: start: 19990414
  3. CLOZARIL [Suspect]
     Dosage: 275 MG, DAILY
     Route: 048
     Dates: start: 19990730, end: 20111001
  4. THIAMINE [Concomitant]
     Dosage: 100 MG, DAILY
     Route: 048
  5. FOLIC ACID [Concomitant]
     Dosage: 5 MG, DAILY
     Route: 048
  6. HYOSCINE BUTYLBROMIDE [Concomitant]
     Dosage: 300 UG, DAILY
     Route: 048
     Dates: start: 20040101
  7. VALPROATE SODIUM [Concomitant]
     Dosage: 300 MG, DAILY
     Route: 048
     Dates: start: 20111001
  8. PROCYCLIDINE HYDROCHLORIDE 2MG TAB [Concomitant]
     Dosage: 5 MG, DAILY
     Route: 048
     Dates: start: 20111001

REACTIONS (8)
  - INTESTINAL ULCER [None]
  - GASTROINTESTINAL HYPOMOTILITY [None]
  - COLITIS [None]
  - CLOSTRIDIAL INFECTION [None]
  - RENAL IMPAIRMENT [None]
  - CONSTIPATION [None]
  - COGNITIVE DISORDER [None]
  - ILEUS PARALYTIC [None]
